FAERS Safety Report 6709607-X (Version None)
Quarter: 2010Q2

REPORT INFORMATION
  Report Type: 
  Country: None (occurrence: None)
  Receive Date: 20100503
  Receipt Date: 20100503
  Transmission Date: 20101027
  Serious: Yes (Other)
  Sender: FDA-Public Use
  Company Number: None

PATIENT
  Sex: Male
  Weight: 6.3504 kg

DRUGS (1)
  1. TYLENOL (CAPLET) [Suspect]
     Indication: PAIN PROPHYLAXIS
     Dosage: 0.8ML ONCE PO ; SINGLE ADMINISTRATION
     Route: 048
     Dates: start: 20100427, end: 20100427

REACTIONS (5)
  - ABDOMINAL PAIN [None]
  - IRRITABILITY [None]
  - MALAISE [None]
  - PAIN [None]
  - VOMITING [None]
